FAERS Safety Report 4371550-1 (Version None)
Quarter: 2004Q2

REPORT INFORMATION
  Report Type: 
  Country: None (occurrence: None)
  Receive Date: 20040607
  Receipt Date: 20040524
  Transmission Date: 20050107
  Serious: Yes (Other)
  Sender: FDA-Public Use
  Company Number: US-JNJFOC-20040505929

PATIENT
  Age: 62 Year
  Sex: Female

DRUGS (6)
  1. REMICADE [Suspect]
     Indication: RHEUMATOID ARTHRITIS
     Route: 042
  2. ANAKINRA [Suspect]
     Indication: RHEUMATOID ARTHRITIS
  3. METHOTREXATE [Suspect]
     Indication: RHEUMATOID ARTHRITIS
  4. ETANERCEPT [Suspect]
     Indication: RHEUMATOID ARTHRITIS
  5. CORTISONE [Concomitant]
     Dosage: DAILY
  6. DICLOFENAC [Concomitant]

REACTIONS (1)
  - BREAST CANCER [None]
